FAERS Safety Report 24983745 (Version 1)
Quarter: 2025Q1

REPORT INFORMATION
  Report Type: Spontaneous
  Country: US (occurrence: US)
  Receive Date: 20250219
  Receipt Date: 20250219
  Transmission Date: 20250408
  Serious: No
  Sender: ELI LILLY AND COMPANY
  Company Number: US-ELI_LILLY_AND_COMPANY-US202502012539

PATIENT
  Age: 41 Year
  Sex: Male

DRUGS (3)
  1. TALTZ [Suspect]
     Active Substance: IXEKIZUMAB
     Indication: Psoriatic arthropathy
     Route: 058
     Dates: start: 20250111
  2. TALTZ [Suspect]
     Active Substance: IXEKIZUMAB
     Route: 058
     Dates: start: 20250125
  3. TALTZ [Suspect]
     Active Substance: IXEKIZUMAB
     Route: 065

REACTIONS (2)
  - Incorrect dose administered [Unknown]
  - Psoriasis [Unknown]

NARRATIVE: CASE EVENT DATE: 20250111
